FAERS Safety Report 8355191-7 (Version None)
Quarter: 2012Q2

REPORT INFORMATION
  Report Type: 
  Country: None (occurrence: None)
  Receive Date: 20120511
  Receipt Date: 20110512
  Transmission Date: 20120825
  Serious: No
  Sender: FDA-Public Use
  Company Number: US-TEVA-2011002349

PATIENT
  Sex: Male
  Weight: 87.168 kg

DRUGS (4)
  1. NUVIGIL [Suspect]
     Indication: SLEEP APNOEA SYNDROME
     Dosage: 150 MILLIGRAM;
     Route: 048
     Dates: start: 20110510
  2. LAMICTAL [Concomitant]
     Dates: start: 20030101
  3. KEPPRA [Concomitant]
     Dates: start: 20030101
  4. ATENOLOL [Concomitant]
     Dates: start: 20030101

REACTIONS (1)
  - HEADACHE [None]
